FAERS Safety Report 8991468 (Version 5)
Quarter: 2013Q4

REPORT INFORMATION
  Report Type: Report from Study
  Country: ES (occurrence: ES)
  Receive Date: 20121231
  Receipt Date: 20131111
  Transmission Date: 20140711
  Serious: Yes (Hospitalization)
  Sender: FDA-Public Use
  Company Number: ES-BIOGENIDEC-2012BI063744

PATIENT
  Age: 49 Year
  Sex: Female

DRUGS (6)
  1. TYSABRI [Suspect]
     Indication: MULTIPLE SCLEROSIS
     Route: 042
     Dates: start: 20080429, end: 20121120
  2. ANTIDEPRESSANTS [Concomitant]
  3. MUSCLE RELAXANTS [Concomitant]
  4. NEURONTIN [Concomitant]
  5. NOIAFREN [Concomitant]
  6. EVRITOPRECTAL NOS [POSSIBLE HEMORRHOID MEDICATION] [Concomitant]

REACTIONS (1)
  - Rectal prolapse [Recovered/Resolved]
